FAERS Safety Report 9791615 (Version 1)
Quarter: 2014Q1

REPORT INFORMATION
  Report Type: Spontaneous
  Country: US (occurrence: US)
  Receive Date: 20140102
  Receipt Date: 20140102
  Transmission Date: 20141002
  Serious: No
  Sender: FDA-Public Use
  Company Number: US-009507513-1312USA007509

PATIENT
  Sex: Male

DRUGS (1)
  1. LIPTRUZET [Suspect]
     Dosage: 10 MG/40 MG ONCE DAILY
     Route: 048

REACTIONS (1)
  - Muscle spasms [Recovering/Resolving]
